FAERS Safety Report 7226535-4 (Version None)
Quarter: 2011Q1

REPORT INFORMATION
  Report Type: 
  Country: None (occurrence: None)
  Receive Date: 20110107
  Receipt Date: 20110107
  Transmission Date: 20110831
  Serious: Yes (Life-Threatening, Hospitalization)
  Sender: FDA-Public Use
  Company Number: None

PATIENT
  Age: 75 Year
  Sex: Female
  Weight: 50 kg

DRUGS (1)
  1. COUMADIN [Suspect]
     Dosage: 3MG QOD PO; 5MG QOD PO
     Route: 048

REACTIONS (6)
  - UNRESPONSIVE TO STIMULI [None]
  - RESPIRATORY DISTRESS [None]
  - HYPERTENSION [None]
  - CONVULSION [None]
  - INTERNATIONAL NORMALISED RATIO INCREASED [None]
  - HAEMORRHAGE INTRACRANIAL [None]
